FAERS Safety Report 5315395-4 (Version None)
Quarter: 2007Q2

REPORT INFORMATION
  Report Type: 
  Country: None (occurrence: None)
  Receive Date: 20070503
  Receipt Date: 20070425
  Transmission Date: 20071010
  Serious: Yes (Other)
  Sender: FDA-Public Use
  Company Number: PHEH2007US04092

PATIENT
  Age: 51 Year
  Sex: Female
  Weight: 56.689 kg

DRUGS (2)
  1. ZELNORM [Suspect]
     Indication: IRRITABLE BOWEL SYNDROME
     Dosage: 6 MG, BID
     Route: 048
     Dates: start: 20070301, end: 20070403
  2. HORMONES [Concomitant]
     Dosage: UNK, UNK
     Route: 062

REACTIONS (2)
  - DIZZINESS [None]
  - HEART RATE IRREGULAR [None]
